FAERS Safety Report 8300638-5 (Version None)
Quarter: 2012Q2

REPORT INFORMATION
  Report Type: 
  Country: None (occurrence: None)
  Receive Date: 20120420
  Receipt Date: 20120412
  Transmission Date: 20120825
  Serious: Yes (Hospitalization, Other)
  Sender: FDA-Public Use
  Company Number: PHHY2012JP029544

PATIENT
  Age: 77 Year
  Sex: Female

DRUGS (2)
  1. AREDIA [Suspect]
     Indication: METASTASES TO BONE
     Route: 041
     Dates: start: 20040401, end: 20060901
  2. ZOMETA [Suspect]
     Indication: METASTASES TO BONE
     Dates: start: 20060901

REACTIONS (6)
  - FEMUR FRACTURE [None]
  - BONE LESION [None]
  - FALL [None]
  - INJURY [None]
  - BACK PAIN [None]
  - PAIN IN EXTREMITY [None]
